FAERS Safety Report 19894695 (Version 1)
Quarter: 2021Q3

REPORT INFORMATION
  Report Type: Report from Study
  Country: DE (occurrence: DE)
  Receive Date: 20210929
  Receipt Date: 20210929
  Transmission Date: 20211014
  Serious: Yes (Death, Hospitalization)
  Sender: FDA-Public Use
  Company Number: DE-ACCORD-239683

PATIENT
  Age: 69 Year
  Sex: Male

DRUGS (18)
  1. PIPERACILLIN. [Concomitant]
     Active Substance: PIPERACILLIN SODIUM
     Route: 048
     Dates: start: 20191023, end: 20191028
  2. GRANISETRON/GRANISETRON HYDROCHLORIDE [Concomitant]
     Active Substance: GRANISETRON HYDROCHLORIDE
     Route: 042
     Dates: start: 20191010
  3. PELGRAZ [Concomitant]
     Active Substance: PEGFILGRASTIM
     Route: 058
     Dates: start: 20191219, end: 20191219
  4. PALONOSETRON/PALONOSETRON HYDROCHLORIDE [Concomitant]
     Active Substance: PALONOSETRON HYDROCHLORIDE
     Route: 042
     Dates: start: 20191010
  5. TAZOBACTAM [Concomitant]
     Active Substance: TAZOBACTAM
     Route: 048
     Dates: start: 20191023, end: 20191028
  6. BISOPROLOL/BISOPROLOL FUMARATE/BISOPROLOL HEMIFUMARATE [Concomitant]
     Active Substance: BISOPROLOL
     Indication: HYPERTENSION
     Route: 048
     Dates: start: 20190902
  7. NETUPITANT [Concomitant]
     Active Substance: NETUPITANT
     Route: 042
     Dates: start: 20191010
  8. PANTOPRAZOLE [Concomitant]
     Active Substance: PANTOPRAZOLE
     Route: 048
     Dates: start: 20200130
  9. TOREM [Concomitant]
     Active Substance: TORSEMIDE
     Indication: EMPHYSEMA
     Route: 048
     Dates: start: 20190902
  10. CARBOPLATIN. [Suspect]
     Active Substance: CARBOPLATIN
     Indication: NON-SMALL CELL LUNG CANCER
     Route: 042
     Dates: start: 20191010, end: 20191017
  11. DEXAMETHASONE. [Concomitant]
     Active Substance: DEXAMETHASONE
     Route: 042
     Dates: start: 20191010
  12. GRANULOCYTE COLONY STIMULATING [Concomitant]
     Active Substance: GRANULOCYTE COLONY-STIMULATING FACTOR NOS
     Route: 058
     Dates: start: 20191022, end: 20191024
  13. ATEZOLIZUMAB. [Suspect]
     Active Substance: ATEZOLIZUMAB
     Indication: NON-SMALL CELL LUNG CANCER
     Route: 042
     Dates: start: 20191010
  14. RAMIPRIL. [Concomitant]
     Active Substance: RAMIPRIL
     Indication: HYPERTENSION
     Route: 048
     Dates: start: 20190902
  15. ATORVASTATIN/ATORVASTATIN CALCIUM [Concomitant]
     Active Substance: ATORVASTATIN CALCIUM
     Indication: ILIAC ARTERY STENOSIS
     Route: 048
     Dates: start: 20190902
  16. PACLITAXEL/PACLITAXEL LIPOSOME [Suspect]
     Active Substance: PACLITAXEL
     Indication: NON-SMALL CELL LUNG CANCER
     Route: 042
     Dates: start: 20191010
  17. ALLOPURINOL/ALLOPURINOL SODIUM [Concomitant]
     Active Substance: ALLOPURINOL SODIUM
     Indication: HYPERURICAEMIA
     Route: 048
     Dates: start: 20190902
  18. ACETYLSALICYLIC ACID [Concomitant]
     Active Substance: ASPIRIN
     Indication: ILIAC ARTERY STENOSIS
     Route: 048
     Dates: start: 20190902

REACTIONS (14)
  - Decreased appetite [Recovered/Resolved]
  - Autoimmune colitis [Fatal]
  - Fatigue [Recovered/Resolved]
  - Pain in extremity [Recovered/Resolved]
  - Leukopenia [Not Recovered/Not Resolved]
  - Subclavian artery occlusion [Recovered/Resolved]
  - Haematochezia [Recovered/Resolved]
  - Skin ulcer [Recovered/Resolved]
  - Anaemia [Recovered/Resolved]
  - Upper gastrointestinal haemorrhage [Recovered/Resolved]
  - Diarrhoea [Recovered/Resolved]
  - Febrile infection [Recovered/Resolved]
  - Stomatitis [Recovered/Resolved]
  - Asthenia [Recovered/Resolved]

NARRATIVE: CASE EVENT DATE: 20191022
